FAERS Safety Report 10146323 (Version 1)
Quarter: 2014Q2

REPORT INFORMATION
  Report Type: Spontaneous
  Country: GB (occurrence: None)
  Receive Date: 20140430
  Receipt Date: 20140430
  Transmission Date: 20141212
  Serious: Yes (Disabling)
  Sender: FDA-Public Use
  Company Number: None

PATIENT
  Age: 20 Year
  Sex: Male
  Weight: 63 kg

DRUGS (1)
  1. CIPROFLOXACIN [Suspect]
     Indication: ACNE CYSTIC
     Route: 048
     Dates: start: 20140317, end: 20140404

REACTIONS (2)
  - Joint stiffness [None]
  - Arthropathy [None]
